FAERS Safety Report 23565559 (Version 1)
Quarter: 2024Q1

REPORT INFORMATION
  Report Type: Spontaneous
  Country: US (occurrence: US)
  Receive Date: 20240226
  Receipt Date: 20240226
  Transmission Date: 20240409
  Serious: Yes (Hospitalization)
  Sender: FDA-Public Use
  Company Number: US-MYLANLABS-2024M1017424

PATIENT
  Age: 64 Year
  Sex: Male

DRUGS (4)
  1. NOREPINEPHRINE [Suspect]
     Active Substance: NOREPINEPHRINE\NOREPINEPHRINE BITARTRATE
     Indication: Hypotension
     Dosage: UNK, INFUSION
     Route: 042
  2. NITROGLYCERIN [Suspect]
     Active Substance: NITROGLYCERIN
     Indication: Peripheral ischaemia
     Dosage: UNK, 5 CM OF 2% NITROGLYCERIN OINTMENT WAS APPLIED
     Route: 061
  3. PHENTOLAMINE [Suspect]
     Active Substance: PHENTOLAMINE
     Indication: Peripheral ischaemia
     Dosage: 5 MILLIGRAM, INJECTED LOCALLY
     Route: 065
  4. VERAPAMIL [Concomitant]
     Active Substance: VERAPAMIL HYDROCHLORIDE
     Indication: Peripheral ischaemia
     Dosage: 2.5 MILLIGRAM
     Route: 013

REACTIONS (4)
  - Administration site extravasation [Recovered/Resolved]
  - Peripheral ischaemia [Recovered/Resolved]
  - Drug ineffective for unapproved indication [Unknown]
  - Off label use [Unknown]
